FAERS Safety Report 14613844 (Version 1)
Quarter: 2018Q1

REPORT INFORMATION
  Report Type: Spontaneous
  Country: JP (occurrence: JP)
  Receive Date: 20180308
  Receipt Date: 20180308
  Transmission Date: 20180509
  Serious: Yes (Other)
  Sender: FDA-Public Use
  Company Number: JP-BAYER-2018-041351

PATIENT
  Age: 79 Year
  Sex: Male

DRUGS (1)
  1. NEXAVAR [Suspect]
     Active Substance: SORAFENIB
     Indication: HEPATOCELLULAR CARCINOMA
     Dosage: DAILY DOSE 600 MG, BID
     Route: 048
     Dates: start: 20140203

REACTIONS (3)
  - Alpha 1 foetoprotein increased [Recovered/Resolved]
  - Hepatocellular carcinoma [Recovered/Resolved]
  - Protein induced by vitamin K absence or antagonist II increased [Recovered/Resolved]

NARRATIVE: CASE EVENT DATE: 20140602
